FAERS Safety Report 26149040 (Version 1)
Quarter: 2025Q4

REPORT INFORMATION
  Report Type: Spontaneous
  Country: US (occurrence: US)
  Receive Date: 20251212
  Receipt Date: 20251212
  Transmission Date: 20260117
  Serious: Yes (Hospitalization)
  Sender: USV PRIVATE LIMITED
  Company Number: US-MLMSERVICE-20251121-PI722137-00336-1

PATIENT
  Sex: Male

DRUGS (2)
  1. ZOLEDRONIC ACID [Suspect]
     Active Substance: ZOLEDRONIC ACID
     Route: 064
  2. CALCITONIN [Concomitant]
     Active Substance: CALCITONIN
     Route: 064

REACTIONS (2)
  - Neonatal hypocalcaemia [Recovered/Resolved]
  - Foetal exposure during pregnancy [Unknown]
